FAERS Safety Report 14202744 (Version 1)
Quarter: 2017Q4

REPORT INFORMATION
  Report Type: Spontaneous
  Country: GB (occurrence: GB)
  Receive Date: 20171118
  Receipt Date: 20171118
  Transmission Date: 20180321
  Serious: Yes (Other)
  Sender: FDA-Public Use
  Company Number: GB-BAXTER-2017BAX037882

PATIENT
  Age: 30 Year
  Sex: Female

DRUGS (19)
  1. POTASSIUM [Suspect]
     Active Substance: POTASSIUM
     Indication: ELECTROLYTE SUBSTITUTION THERAPY
     Route: 042
  2. ONDANSETRON 2MG/ML SOLUTION FOR INJECTION [Suspect]
     Active Substance: ONDANSETRON
     Indication: HYPEREMESIS GRAVIDARUM
     Route: 065
  3. COMPOUND SODIUM LACTATE SOLUTION FOR INFUSION B.P . [Suspect]
     Active Substance: CALCIUM CHLORIDE\POTASSIUM CHLORIDE\SODIUM CHLORIDE\SODIUM LACTATE
     Indication: ELECTROLYTE IMBALANCE
     Route: 042
  4. OMEPRAZOLE. [Suspect]
     Active Substance: OMEPRAZOLE
     Indication: PRODUCT USED FOR UNKNOWN INDICATION
     Route: 065
  5. ENOXAPARIN [Suspect]
     Active Substance: ENOXAPARIN
     Indication: THROMBOSIS PROPHYLAXIS
     Route: 065
  6. SANDO-K [Suspect]
     Active Substance: POTASSIUM BICARBONATE\POTASSIUM CHLORIDE
     Indication: ELECTROLYTE SUBSTITUTION THERAPY
     Route: 048
  7. DOMPERIDONE [Suspect]
     Active Substance: DOMPERIDONE
     Indication: HYPEREMESIS GRAVIDARUM
     Route: 065
  8. METOCLOPRAMIDE. [Suspect]
     Active Substance: METOCLOPRAMIDE
     Indication: HYPEREMESIS GRAVIDARUM
     Route: 065
  9. MORPHINE [Suspect]
     Active Substance: MORPHINE
     Indication: ANALGESIC THERAPY
     Route: 065
  10. PABRINEX (ASCORBIC ACID\NIACINAMIDE\PYRIDOXINE HYDROCHLORIDE\RIBOFLAVIN\THIAMINE HYDROCHLORIDE) [Suspect]
     Active Substance: ASCORBIC ACID\NIACINAMIDE\PYRIDOXINE HYDROCHLORIDE\RIBOFLAVIN\THIAMINE HYDROCHLORIDE
     Indication: NUTRITIONAL SUPPLEMENTATION
     Route: 042
  11. CYCLIZINE [Suspect]
     Active Substance: CYCLIZINE
     Indication: HYPEREMESIS GRAVIDARUM
     Route: 065
  12. PREGNACARE [Suspect]
     Active Substance: MINERALS\VITAMINS
     Indication: PRODUCT USED FOR UNKNOWN INDICATION
     Route: 065
  13. PARACETAMOL [Suspect]
     Active Substance: ACETAMINOPHEN
     Indication: ANALGESIC THERAPY
     Route: 065
  14. PEPTAC LIQUID [Suspect]
     Active Substance: CALCIUM CARBONATE\SODIUM ALGINATE\SODIUM BICARBONATE
     Indication: VOMITING
     Route: 065
  15. MEPERIDINE [Suspect]
     Active Substance: MEPERIDINE
     Indication: ANALGESIC THERAPY
     Route: 065
  16. RANITIDINE. [Suspect]
     Active Substance: RANITIDINE
     Indication: VOMITING
     Route: 065
  17. CALCIUM [Suspect]
     Active Substance: CALCIUM
     Indication: ELECTROLYTE SUBSTITUTION THERAPY
     Route: 042
  18. PANTOPRAZOLE [Suspect]
     Active Substance: PANTOPRAZOLE
     Indication: VOMITING
     Route: 042
  19. MAGNESIUM ASPARTATE [Suspect]
     Active Substance: MAGNESIUM ASPARTATE
     Indication: ELECTROLYTE SUBSTITUTION THERAPY
     Dosage: SACHETS
     Route: 065

REACTIONS (8)
  - Dehydration [None]
  - Electrocardiogram QT prolonged [Recovered/Resolved]
  - Off label use [None]
  - Hypophagia [None]
  - Alanine aminotransferase increased [None]
  - Exposure during pregnancy [Not Recovered/Not Resolved]
  - Tachycardia [None]
  - Electrolyte imbalance [None]
